FAERS Safety Report 9685585 (Version 1)
Quarter: 2013Q4

REPORT INFORMATION
  Report Type: Spontaneous
  Country: US (occurrence: None)
  Receive Date: 20131112
  Receipt Date: 20131112
  Transmission Date: 20140711
  Serious: No
  Sender: FDA-Public Use
  Company Number: None

PATIENT
  Age: 66 Year
  Sex: Female

DRUGS (1)
  1. AUGMENTIN (AMOXICILLIN-CLAVULANATE) [Suspect]
     Dates: start: 20120613, end: 20120621

REACTIONS (2)
  - Hepatitis cholestatic [None]
  - Drug-induced liver injury [None]
